FAERS Safety Report 5618832-0 (Version None)
Quarter: 2008Q1

REPORT INFORMATION
  Report Type: 
  Country: None (occurrence: None)
  Receive Date: 20080207
  Receipt Date: 20080125
  Transmission Date: 20080703
  Serious: Yes (Other)
  Sender: FDA-Public Use
  Company Number: US-ELI_LILLY_AND_COMPANY-US200801005807

PATIENT
  Age: 79 Year
  Sex: Male

DRUGS (2)
  1. GEMZAR [Suspect]
     Indication: NEOPLASM MALIGNANT
  2. TARCEVA [Concomitant]
     Indication: NEOPLASM MALIGNANT
     Dosage: UNK, DAILY (1/D)
     Dates: start: 20080112

REACTIONS (5)
  - DRUG INEFFECTIVE [None]
  - FATIGUE [None]
  - MALIGNANT NEOPLASM PROGRESSION [None]
  - NEOPLASM MALIGNANT [None]
  - RASH PUSTULAR [None]
